FAERS Safety Report 5787458-0 (Version None)
Quarter: 2008Q2

REPORT INFORMATION
  Report Type: 
  Country: None (occurrence: None)
  Receive Date: 20080623
  Receipt Date: 20080623
  Transmission Date: 20081010
  Serious: Yes (Hospitalization)
  Sender: FDA-Public Use
  Company Number: None

PATIENT
  Sex: Male
  Weight: 52 kg

DRUGS (1)
  1. CISPLATIN [Suspect]
     Dosage: 154 MG
     Dates: end: 20080204

REACTIONS (2)
  - ANAEMIA [None]
  - HAEMORRHAGE [None]
